FAERS Safety Report 12769080 (Version 2)
Quarter: 2016Q3

REPORT INFORMATION
  Report Type: Spontaneous
  Country: CN (occurrence: CN)
  Receive Date: 20160921
  Receipt Date: 20160926
  Transmission Date: 20161109
  Serious: Yes (Other)
  Sender: FDA-Public Use
  Company Number: CN-009507513-1609CHN009622

PATIENT
  Age: 26 Year
  Sex: Male

DRUGS (5)
  1. CYCLOSPORINE. [Concomitant]
     Active Substance: CYCLOSPORINE
     Indication: PROPHYLAXIS
     Dosage: UNK
     Dates: start: 2016
  2. NOXAFIL [Suspect]
     Active Substance: POSACONAZOLE
     Indication: ANTIFUNGAL PROPHYLAXIS
     Dosage: UNK
     Route: 048
     Dates: start: 201604, end: 2016
  3. AMPHOTERICIN B. [Suspect]
     Active Substance: AMPHOTERICIN B
     Indication: SINUSITIS
  4. METHOTREXATE. [Concomitant]
     Active Substance: METHOTREXATE
     Indication: PROPHYLAXIS
     Dosage: UNK
     Dates: start: 2016
  5. NOXAFIL [Suspect]
     Active Substance: POSACONAZOLE
     Indication: SINUSITIS
     Dosage: UNK
     Route: 048
     Dates: start: 2016, end: 2016

REACTIONS (6)
  - Acute graft versus host disease in skin [Recovered/Resolved]
  - Sinusitis bacterial [Recovered/Resolved]
  - Liver disorder [Unknown]
  - Aplastic anaemia [Unknown]
  - Acute graft versus host disease in intestine [Recovered/Resolved]
  - Renal impairment [Unknown]

NARRATIVE: CASE EVENT DATE: 2016
